FAERS Safety Report 8984558 (Version 3)
Quarter: 2013Q2

REPORT INFORMATION
  Report Type: Spontaneous
  Country: DE (occurrence: DE)
  Receive Date: 20121225
  Receipt Date: 20130416
  Transmission Date: 20140414
  Serious: Yes (Life-Threatening, Hospitalization)
  Sender: FDA-Public Use
  Company Number: DE-SANOFI-AVENTIS-2012SA094009

PATIENT
  Age: 84 Year
  Sex: Female
  Weight: 75 kg

DRUGS (14)
  1. MULTAQ [Suspect]
     Indication: ATRIAL FIBRILLATION
     Route: 048
     Dates: start: 20121211, end: 20121216
  2. PANTOZOL [Concomitant]
     Indication: PRODUCT USED FOR UNKNOWN INDICATION
     Route: 048
  3. METOPROLOL [Concomitant]
     Indication: ATRIAL TACHYCARDIA
     Route: 048
     Dates: end: 201212
  4. DIGITOXIN [Concomitant]
     Indication: PRODUCT USED FOR UNKNOWN INDICATION
  5. AMLODIPINE [Concomitant]
     Indication: PRODUCT USED FOR UNKNOWN INDICATION
  6. ZOLPIDEM [Concomitant]
     Indication: PRODUCT USED FOR UNKNOWN INDICATION
     Route: 065
     Dates: end: 201212
  7. CYMBALTA [Concomitant]
     Indication: PRODUCT USED FOR UNKNOWN INDICATION
     Route: 048
     Dates: end: 201212
  8. MARCUMAR [Concomitant]
     Indication: ATRIAL FIBRILLATION
     Dosage: DOSE BASED ON INTERNATIONAL NORMAL RATIO
     Route: 048
     Dates: end: 201212
  9. STALEVO [Concomitant]
     Indication: PARKINSON^S DISEASE
     Route: 048
     Dates: end: 201212
  10. MIRTAZAPINE [Concomitant]
     Indication: PRODUCT USED FOR UNKNOWN INDICATION
     Route: 048
     Dates: end: 201212
  11. CO-DIOVAN [Concomitant]
     Indication: HYPERTENSION
     Dosage: 1DF = 160/12.5MG
     Route: 048
     Dates: end: 201212
  12. FLECAINIDE [Concomitant]
     Indication: ATRIAL FIBRILLATION
     Route: 048
     Dates: start: 20121203, end: 20121210
  13. ZOPICLONE [Concomitant]
     Route: 048
  14. NOVALGIN TROPFEN [Concomitant]
     Indication: PAIN
     Route: 048

REACTIONS (13)
  - Acute hepatic failure [Recovered/Resolved]
  - Aspartate aminotransferase increased [Recovered/Resolved]
  - Prothrombin time prolonged [Recovered/Resolved]
  - International normalised ratio increased [Recovered/Resolved]
  - Alanine aminotransferase increased [Recovered/Resolved]
  - Gamma-glutamyltransferase increased [Recovered/Resolved]
  - Blood bilirubin increased [Recovered/Resolved]
  - Ascites [Recovered/Resolved]
  - Somnolence [Recovered/Resolved]
  - Multi-organ failure [Recovered/Resolved]
  - Renal failure acute [Recovered/Resolved]
  - Blood creatinine increased [Recovered/Resolved]
  - Glomerular filtration rate decreased [Recovered/Resolved]
